FAERS Safety Report 4920580-7 (Version None)
Quarter: 2006Q1

REPORT INFORMATION
  Report Type: 
  Country: None (occurrence: None)
  Receive Date: 20060217
  Receipt Date: 20060207
  Transmission Date: 20060701
  Serious: Yes (Hospitalization)
  Sender: FDA-Public Use
  Company Number: 2006018827

PATIENT
  Sex: Female

DRUGS (7)
  1. VFEND [Suspect]
     Indication: CANDIDA SEPSIS
     Dosage: 200 MG (200 MG, EVERY DAY), ORAL
     Route: 048
     Dates: start: 20051030, end: 20051104
  2. VANCOMYCIN HCL [Suspect]
     Indication: SEPSIS
     Dosage: 200GRAM (200 GRAM, EVERY DAY), INTRAVENOUS
     Route: 042
     Dates: start: 20051103, end: 20051104
  3. OMEPRAZOLE [Suspect]
     Indication: ILL-DEFINED DISORDER
     Dosage: 40 MG (40 MG, EVERY DAY), INTRAVENOUS
     Route: 042
     Dates: start: 20051030
  4. GLAGYL TABLET (METRONIDAZOLE) [Suspect]
     Indication: SEPSIS
     Dosage: 1000 MG (1000 MG , DAILY INTERVAL: EVERY DAY), ORAL
     Route: 048
     Dates: start: 20051103
  5. ALL OTHER THERAPEUTIC PRODUCTS(ALL OTHER THERAPEUTIC PRODUCTS) [Concomitant]
  6. MAXIPIME [Concomitant]
  7. FUROSEMIDE [Concomitant]

REACTIONS (11)
  - CONDITION AGGRAVATED [None]
  - DRUG INTERACTION [None]
  - ENTEROCOCCAL INFECTION [None]
  - INJURY [None]
  - LIVER DISORDER [None]
  - PERITONITIS [None]
  - PLEURAL EFFUSION [None]
  - RESPIRATORY DISTRESS [None]
  - RESPIRATORY FAILURE [None]
  - SEPSIS [None]
  - SEPTIC SHOCK [None]
